FAERS Safety Report 12681068 (Version 1)
Quarter: 2016Q3

REPORT INFORMATION
  Report Type: Spontaneous
  Country: US (occurrence: US)
  Receive Date: 20160824
  Receipt Date: 20160824
  Transmission Date: 20161109
  Serious: No
  Sender: FDA-Public Use
  Company Number: US-MYLANLABS-2016M1011912

PATIENT

DRUGS (5)
  1. CLORAZEPATE DIPOTASSIUM TABLETS, USP [Suspect]
     Active Substance: CLORAZEPATE DIPOTASSIUM
     Indication: MIGRAINE
     Dosage: 3.75 MG, PRN
     Route: 048
     Dates: start: 2013
  2. TOPIRAMATE. [Suspect]
     Active Substance: TOPIRAMATE
     Indication: HEADACHE
     Dosage: 25 MG, BID
     Route: 048
     Dates: start: 2014
  3. SYNTHROID [Concomitant]
     Active Substance: LEVOTHYROXINE SODIUM
     Dosage: UNK
  4. VERAPAMIL [Concomitant]
     Active Substance: VERAPAMIL HYDROCHLORIDE
     Indication: HEADACHE
  5. CLORAZEPATE DIPOTASSIUM TABLETS, USP [Suspect]
     Active Substance: CLORAZEPATE DIPOTASSIUM
     Indication: OFF LABEL USE

REACTIONS (1)
  - Alopecia [Not Recovered/Not Resolved]

NARRATIVE: CASE EVENT DATE: 2013
